FAERS Safety Report 21041573 (Version 2)
Quarter: 2022Q3

REPORT INFORMATION
  Report Type: Spontaneous
  Country: GB (occurrence: GB)
  Receive Date: 20220705
  Receipt Date: 20220810
  Transmission Date: 20221026
  Serious: Yes (Life-Threatening, Hospitalization, Other)
  Sender: FDA-Public Use
  Company Number: GB-009507513-2206GBR008999

PATIENT
  Age: 65 Year
  Sex: Male

DRUGS (1)
  1. BCG LIVE [Suspect]
     Active Substance: BACILLUS CALMETTE-GUERIN SUBSTRAIN TICE LIVE ANTIGEN
     Indication: Bladder transitional cell carcinoma stage II
     Dosage: 2 CYCLES
     Route: 043

REACTIONS (3)
  - Infective aortitis [Recovered/Resolved]
  - Pseudoaneurysm infection [Recovered/Resolved]
  - Renal pseudoaneurysm [Recovered/Resolved]
